FAERS Safety Report 7156600-1 (Version None)
Quarter: 2010Q4

REPORT INFORMATION
  Report Type: 
  Country: None (occurrence: None)
  Receive Date: 20101214
  Receipt Date: 20091103
  Transmission Date: 20110411
  Serious: No
  Sender: FDA-Public Use
  Company Number: US-ASTRAZENECA-2009SE24211

PATIENT
  Age: 45 Year
  Sex: Female
  Weight: 90.7 kg

DRUGS (5)
  1. CRESTOR [Suspect]
     Indication: BLOOD CHOLESTEROL INCREASED
     Route: 048
     Dates: start: 20091027
  2. TRILIPIX [Concomitant]
     Indication: BLOOD CHOLESTEROL INCREASED
  3. METFORMIN [Concomitant]
  4. ALLERGIC MEDICATION [Concomitant]
  5. MIGRAINE MEDICATION [Concomitant]

REACTIONS (1)
  - BLOOD GLUCOSE FLUCTUATION [None]
